FAERS Safety Report 17430450 (Version 1)
Quarter: 2020Q1

REPORT INFORMATION
  Report Type: Spontaneous
  Country: US (occurrence: US)
  Receive Date: 20200218
  Receipt Date: 20200218
  Transmission Date: 20200409
  Serious: No
  Sender: FDA-Public Use
  Company Number: US-009507513-2002USA006454

PATIENT
  Age: 19 Year

DRUGS (1)
  1. NEXPLANON [Suspect]
     Active Substance: ETONOGESTREL
     Dosage: FIRST IMPLANT, LEFT ARM
     Route: 059
     Dates: start: 2016, end: 20200206

REACTIONS (3)
  - Incorrect product administration duration [Unknown]
  - Complication of device removal [Recovered/Resolved]
  - Complication associated with device [Recovered/Resolved]
